FAERS Safety Report 4963245-8 (Version None)
Quarter: 2006Q2

REPORT INFORMATION
  Report Type: 
  Country: None (occurrence: None)
  Receive Date: 20060405
  Receipt Date: 20041008
  Transmission Date: 20061013
  Serious: Yes (Life-Threatening, Hospitalization, Disabling)
  Sender: FDA-Public Use
  Company Number: US-MERCK-0410USA01126

PATIENT
  Age: 27 Year
  Sex: Male
  Weight: 109 kg

DRUGS (2)
  1. VIOXX [Suspect]
     Indication: SHOULDER PAIN
     Route: 048
     Dates: start: 20020807, end: 20040101
  2. VIOXX [Suspect]
     Route: 048
     Dates: start: 20020807, end: 20040101

REACTIONS (16)
  - ADHESION [None]
  - ARTHROPATHY [None]
  - BRADYCARDIA [None]
  - CARDIAC FAILURE CONGESTIVE [None]
  - CARDIOMYOPATHY [None]
  - CHEST PAIN [None]
  - DILATATION VENTRICULAR [None]
  - HEART RATE IRREGULAR [None]
  - HYPERTROPHY [None]
  - HYPOKALAEMIA [None]
  - LIMB INJURY [None]
  - MITRAL VALVE INCOMPETENCE [None]
  - MUSCULOSKELETAL CHEST PAIN [None]
  - MYOCARDIAL INFARCTION [None]
  - ROTATOR CUFF SYNDROME [None]
  - TRICUSPID VALVE INCOMPETENCE [None]
